FAERS Safety Report 16779709 (Version 1)
Quarter: 2019Q3

REPORT INFORMATION
  Report Type: Spontaneous
  Country: IT (occurrence: IT)
  Receive Date: 20190906
  Receipt Date: 20190906
  Transmission Date: 20191005
  Serious: Yes (Other)
  Sender: FDA-Public Use
  Company Number: IT-ACCORD-153926

PATIENT
  Age: 57 Year
  Sex: Male

DRUGS (4)
  1. ASCRIPTIN [Concomitant]
     Active Substance: ASPIRIN
  2. AMLODIPINE [Suspect]
     Active Substance: AMLODIPINE BESYLATE
     Indication: HYPERTENSION
     Route: 048
     Dates: start: 20181015
  3. TRIATEC (RAMIPRIL) [Suspect]
     Active Substance: RAMIPRIL
     Indication: HYPERTENSION
     Dosage: STRENGTH 5 MG
     Route: 048
     Dates: start: 20181015
  4. CONGESCOR [Concomitant]
     Active Substance: BISOPROLOL

REACTIONS (3)
  - Blood pressure increased [Recovering/Resolving]
  - Therapy non-responder [Unknown]
  - Headache [Recovering/Resolving]

NARRATIVE: CASE EVENT DATE: 20190220
